FAERS Safety Report 5298933-X (Version None)
Quarter: 2007Q2

REPORT INFORMATION
  Report Type: 
  Country: None (occurrence: None)
  Receive Date: 20070417
  Receipt Date: 20070412
  Transmission Date: 20071010
  Serious: Yes (Death)
  Sender: FDA-Public Use
  Company Number: PHHO2007VE06531

PATIENT
  Sex: Female

DRUGS (7)
  1. PANTOP [Concomitant]
  2. PLAVIX [Concomitant]
  3. GRANOCYTE [Concomitant]
  4. RECORMON [Concomitant]
  5. INSULINE NORDISK [Concomitant]
  6. ANTIBIOTICS [Concomitant]
  7. ZELMAC / HTF 919A [Suspect]
     Dosage: 6 MG, BID
     Dates: start: 20060701

REACTIONS (4)
  - MYELODYSPLASTIC SYNDROME [None]
  - PLATELET COUNT DECREASED [None]
  - RENAL FAILURE [None]
  - RESPIRATORY FAILURE [None]
